FAERS Safety Report 6370846-1 (Version None)
Quarter: 2009Q3

REPORT INFORMATION
  Report Type: 
  Country: None (occurrence: None)
  Receive Date: 20090923
  Receipt Date: 20070703
  Transmission Date: 20100115
  Serious: Yes (Hospitalization, Other)
  Sender: FDA-Public Use
  Company Number: US-ASTRAZENECA-2006UW24801

PATIENT
  Age: 22884 Day
  Sex: Female
  Weight: 91.6 kg

DRUGS (23)
  1. SEROQUEL [Suspect]
     Indication: DEPRESSION
     Dosage: 25 MG - 300 MG
     Route: 048
     Dates: start: 19990818
  2. SEROQUEL [Suspect]
     Indication: ANXIETY
     Dosage: 25 MG - 300 MG
     Route: 048
     Dates: start: 19990818
  3. SEROQUEL [Suspect]
     Dosage: SAMPLES
     Route: 048
     Dates: start: 20000101, end: 20050101
  4. SEROQUEL [Suspect]
     Dosage: SAMPLES
     Route: 048
     Dates: start: 20000101, end: 20050101
  5. LEXAPRO [Concomitant]
     Route: 065
  6. GLUCOPHAGE XR [Concomitant]
     Dosage: 500 - 2000 MG
     Route: 048
  7. GABITRIL [Concomitant]
     Route: 048
  8. CRESTOR [Concomitant]
     Route: 048
  9. IMITREX [Concomitant]
     Route: 048
  10. FLEXERIL [Concomitant]
     Route: 048
  11. KLONOPIN [Concomitant]
     Route: 048
  12. SERZONE [Concomitant]
     Dosage: 200 - 300 MG
     Route: 048
  13. SYNTHROID [Concomitant]
     Route: 048
  14. GLUCOTROL [Concomitant]
     Dosage: 2.5 - 5 MG
  15. PRAVACHOL [Concomitant]
     Route: 048
  16. EFFEXOR XR [Concomitant]
     Dosage: 75-225 MG
     Route: 048
  17. ORTHO-EST [Concomitant]
     Route: 048
  18. AMARYL [Concomitant]
     Route: 048
  19. VIOXX [Concomitant]
     Route: 048
  20. PROZAC [Concomitant]
     Route: 048
  21. LUNESTA [Concomitant]
     Route: 048
  22. PROVIGIL [Concomitant]
     Route: 048
  23. AMITRIPTYLINE [Concomitant]
     Dosage: 25-50 MG
     Route: 048

REACTIONS (3)
  - DIABETES MELLITUS [None]
  - SYNCOPE [None]
  - TYPE 2 DIABETES MELLITUS [None]
